FAERS Safety Report 19984632 (Version 4)
Quarter: 2021Q4

REPORT INFORMATION
  Report Type: Report from Study
  Country: JP (occurrence: JP)
  Receive Date: 20211022
  Receipt Date: 20211129
  Transmission Date: 20220304
  Serious: Yes (Hospitalization, Other)
  Sender: FDA-Public Use
  Company Number: JP-ASTELLAS-2021JP020149

PATIENT
  Age: 62 Year
  Sex: Male
  Weight: 64 kg

DRUGS (25)
  1. GILTERITINIB [Suspect]
     Active Substance: GILTERITINIB
     Indication: Acute myeloid leukaemia
     Route: 048
     Dates: start: 20210702, end: 20211016
  2. CYTARABINE [Suspect]
     Active Substance: CYTARABINE
     Indication: Acute myeloid leukaemia
     Route: 042
     Dates: start: 20210625, end: 20211010
  3. IDARUBICIN [Suspect]
     Active Substance: IDARUBICIN
     Indication: Acute myeloid leukaemia
     Route: 042
     Dates: start: 20210625, end: 20210627
  4. HUMAN RED BLOOD CELL [Concomitant]
     Active Substance: HUMAN RED BLOOD CELL
     Indication: Product used for unknown indication
     Dosage: UNK UNK, UNKNOWN FREQ.
     Route: 065
     Dates: start: 20210618
  5. IRRADIATED PLATELET CONCENTRATE, LEUKOCYTES R [Concomitant]
     Indication: Product used for unknown indication
     Dosage: UNK UNK, UNKNOWN FREQ.
     Route: 065
     Dates: start: 20210620
  6. ITRACONAZOLE [Concomitant]
     Active Substance: ITRACONAZOLE
     Indication: Infection prophylaxis
     Route: 048
     Dates: start: 20210805
  7. INSULIN GLARGINE RECOMBINANT [Concomitant]
     Active Substance: INSULIN GLARGINE
     Indication: Diabetes mellitus
     Dosage: 6 UNITS, ONCE DAILY (BEFORE SLEEP)
     Route: 058
     Dates: start: 20210819
  8. LYUMJEV [Concomitant]
     Active Substance: INSULIN LISPRO-AABC
     Indication: Diabetes mellitus
     Dosage: 2-4 UNITS BEFORE EACH MEAL, DEPENDING ON BLOOD GLUCOSE LEVELS
     Route: 058
     Dates: start: 20211006
  9. VEEN D [Concomitant]
     Active Substance: CALCIUM CHLORIDE\DEXTROSE\POTASSIUM CHLORIDE\SODIUM ACETATE\SODIUM CHLORIDE
     Indication: Fluid replacement
     Route: 042
     Dates: start: 20211006
  10. ELNEOPA NF NO.1 [Concomitant]
     Indication: Gastritis
     Route: 042
     Dates: start: 20211016
  11. ELNEOPA NF NO.1 [Concomitant]
     Indication: Mucosal disorder
     Dosage: 1000 ML, CONTINUOUS DRIP INFUSION
     Route: 041
     Dates: start: 20211023
  12. OMEPRAZOLE [Concomitant]
     Active Substance: OMEPRAZOLE
     Indication: Gastritis
     Route: 042
     Dates: start: 20211016
  13. OMEPRAZOLE [Concomitant]
     Active Substance: OMEPRAZOLE
     Indication: Mucosal disorder
     Route: 042
     Dates: start: 20211023
  14. PENTAZOCINE [Concomitant]
     Active Substance: PENTAZOCINE
     Indication: Gastritis
     Route: 042
     Dates: start: 20211016
  15. HYDROXYZINE HYDROCHLORIDE [Concomitant]
     Active Substance: HYDROXYZINE HYDROCHLORIDE
     Indication: Gastritis
     Route: 042
     Dates: start: 20211016
  16. FILGRASTIM RECOMBINANT [Concomitant]
     Indication: Neutropenia
     Route: 058
     Dates: start: 20211016
  17. POTASSIUM ASPARTATE [Concomitant]
     Active Substance: POTASSIUM ASPARTATE
     Indication: Hypokalaemia
     Route: 042
     Dates: start: 20211016
  18. MEROPENEM [Concomitant]
     Active Substance: MEROPENEM
     Indication: Sepsis
     Route: 042
     Dates: start: 20211017, end: 20211104
  19. TEICOPLANIN [Concomitant]
     Active Substance: TEICOPLANIN
     Indication: Sepsis
     Route: 042
     Dates: start: 20211017, end: 20211102
  20. OXYGEN [Concomitant]
     Active Substance: OXYGEN
     Indication: Sepsis
     Route: 065
     Dates: start: 20211017
  21. OXYGEN [Concomitant]
     Active Substance: OXYGEN
     Indication: Respiratory failure
     Route: 065
     Dates: end: 20211031
  22. NICORANDIL [Concomitant]
     Active Substance: NICORANDIL
     Indication: Electrocardiogram ST segment elevation
     Dosage: 2 ML/H, CONTINUOUS DRIP INFUSION
     Route: 041
     Dates: start: 20211020, end: 20211025
  23. SODIUM PHOSPHATE [Concomitant]
     Active Substance: SODIUM PHOSPHATE
     Indication: Hypophosphataemia
     Route: 042
     Dates: start: 20211021
  24. KCL [Concomitant]
     Active Substance: POTASSIUM CHLORIDE
     Indication: Electrolyte substitution therapy
     Dosage: UNK UNK, UNKNOWN FREQ.
     Route: 048
     Dates: start: 20211023
  25. KCL [Concomitant]
     Active Substance: POTASSIUM CHLORIDE
     Route: 048

REACTIONS (6)
  - Mucosal disorder [Recovered/Resolved]
  - Acute kidney injury [Recovered/Resolved]
  - Sepsis [Recovered/Resolved]
  - Electrocardiogram ST segment elevation [Recovered/Resolved]
  - Pneumonia [Recovered/Resolved]
  - Hypokalaemia [Recovered/Resolved]

NARRATIVE: CASE EVENT DATE: 20211017
